FAERS Safety Report 7341911-7 (Version None)
Quarter: 2011Q1

REPORT INFORMATION
  Report Type: 
  Country: None (occurrence: None)
  Receive Date: 20110309
  Receipt Date: 20110214
  Transmission Date: 20110831
  Serious: No
  Sender: FDA-Public Use
  Company Number: US-B.I. PHARMACEUTICALS,INC./RIDGEFIELD-2011-BP-05452BP

PATIENT
  Sex: Female

DRUGS (9)
  1. ACTOS [Concomitant]
     Indication: DIABETES MELLITUS
  2. TOPRAL [Concomitant]
     Indication: HYPERTENSION
  3. DESRYL [Concomitant]
     Indication: SLEEP DISORDER
  4. EXFORGE [Concomitant]
     Indication: HYPERTENSION
  5. VICODIN [Concomitant]
     Indication: MUSCULOSKELETAL DISCOMFORT
  6. MULTIVITAMIN [Concomitant]
     Indication: PROPHYLAXIS
  7. FISH OIL [Concomitant]
     Indication: PROPHYLAXIS
  8. CYMBALTA [Concomitant]
     Indication: DEPRESSION
  9. PRADAXA [Suspect]
     Indication: ATRIAL FIBRILLATION
     Dosage: 300 MG
     Route: 048
     Dates: start: 20110101

REACTIONS (2)
  - TONGUE DISCOLOURATION [None]
  - DYSPEPSIA [None]
